FAERS Safety Report 8728364 (Version 2)
Quarter: 2012Q4

REPORT INFORMATION
  Report Type: Report from Study
  Country: US (occurrence: US)
  Receive Date: 20120817
  Receipt Date: 20120905
  Transmission Date: 20130627
  Serious: Yes (Hospitalization)
  Sender: FDA-Public Use
  Company Number: US-JNJFOC-20120805495

PATIENT
  Age: 59 None
  Sex: Female
  Weight: 74.84 kg

DRUGS (12)
  1. REMICADE [Suspect]
     Indication: CROHN^S DISEASE
     Route: 042
     Dates: start: 201203, end: 201203
  2. REMICADE [Suspect]
     Indication: CROHN^S DISEASE
     Route: 042
  3. AVELOX [Suspect]
     Indication: AURICULAR SWELLING
     Route: 065
  4. AZITHROMYCIN [Suspect]
     Indication: AURICULAR SWELLING
     Route: 048
     Dates: start: 20120616, end: 20120620
  5. HYDROCHLOROTHIAZIDE [Concomitant]
     Indication: HYPERTENSION
     Route: 065
  6. AMLODIPINE [Concomitant]
     Indication: HYPERTENSION
     Route: 065
  7. LOSARTAN [Concomitant]
     Route: 065
  8. IMURAN [Concomitant]
     Indication: CROHN^S DISEASE
     Route: 065
  9. PAXIL [Concomitant]
     Indication: STRESS
     Route: 065
  10. SIMVASTATIN [Concomitant]
     Indication: BLOOD CHOLESTEROL
     Route: 065
  11. POTASSIUM [Concomitant]
     Indication: ELECTROLYTE IMBALANCE
     Route: 065
  12. OMEPRAZOLE [Concomitant]
     Indication: GASTROOESOPHAGEAL REFLUX DISEASE
     Route: 065

REACTIONS (9)
  - Salivary gland calculus [Recovering/Resolving]
  - Auricular swelling [Not Recovered/Not Resolved]
  - Salivary gland enlargement [Recovering/Resolving]
  - Blood sodium decreased [Recovered/Resolved]
  - Blood potassium decreased [Recovered/Resolved]
  - Dry mouth [Recovered/Resolved]
  - Electrolyte depletion [Recovered/Resolved]
  - Thirst [Recovered/Resolved]
  - Aptyalism [Recovered/Resolved]
